FAERS Safety Report 15648197 (Version 10)
Quarter: 2022Q3

REPORT INFORMATION
  Report Type: Report from Study
  Country: DE (occurrence: DE)
  Receive Date: 20181122
  Receipt Date: 20220926
  Transmission Date: 20221027
  Serious: No
  Sender: FDA-Public Use
  Company Number: PHHY2018DE079179

PATIENT
  Age: 54 Year
  Sex: Male

DRUGS (3)
  1. COSENTYX [Suspect]
     Active Substance: SECUKINUMAB
     Indication: Ankylosing spondylitis
     Dosage: 150 MG, UNK
     Route: 065
     Dates: start: 20161110, end: 20161207
  2. COSENTYX [Suspect]
     Active Substance: SECUKINUMAB
     Dosage: 150 MG, UNK
     Route: 065
     Dates: start: 20161208
  3. COSENTYX [Suspect]
     Active Substance: SECUKINUMAB
     Dosage: 150 MG, UNK
     Route: 065

REACTIONS (13)
  - Respiratory tract infection [Recovered/Resolved]
  - Tissue infiltration [Recovered/Resolved]
  - Rash maculo-papular [Not Recovered/Not Resolved]
  - Erythema [Not Recovered/Not Resolved]
  - Osteitis [Recovered/Resolved]
  - COVID-19 [Recovered/Resolved]
  - Eczema [Not Recovered/Not Resolved]
  - Dermatophytosis of nail [Recovered/Resolved]
  - Diarrhoea [Not Recovered/Not Resolved]
  - Upper respiratory tract infection [Recovered/Resolved]
  - Carpal tunnel syndrome [Not Recovered/Not Resolved]
  - Dermatitis allergic [Recovered/Resolved]
  - Back pain [Recovered/Resolved]

NARRATIVE: CASE EVENT DATE: 20180702
